FAERS Safety Report 5333802-8 (Version None)
Quarter: 2007Q2

REPORT INFORMATION
  Report Type: 
  Country: None (occurrence: None)
  Receive Date: 20070524
  Receipt Date: 20070515
  Transmission Date: 20071010
  Serious: Yes (Death, Hospitalization, Disabling)
  Sender: FDA-Public Use
  Company Number: HQWYE340112APR07

PATIENT
  Age: 51 Year
  Sex: Female
  Weight: 54.7 kg

DRUGS (16)
  1. RAPAMUNE [Suspect]
     Indication: LUNG TRANSPLANT
     Route: 048
     Dates: start: 20050823, end: 20050101
  2. RAPAMUNE [Suspect]
     Route: 048
     Dates: start: 20050101, end: 20051223
  3. CLONIDINE [Concomitant]
  4. LOSARTAN POSTASSIUM [Concomitant]
  5. HYDRALAZINE HCL [Concomitant]
  6. PREDNISONE TAB [Concomitant]
  7. FAMOTIDINE [Concomitant]
  8. FENTANYL [Concomitant]
  9. ARANESP [Concomitant]
  10. ALPRAZOLAM [Concomitant]
  11. SALBUTAMOL [Concomitant]
  12. OS-CAL [Concomitant]
  13. IPRATROPIUM BROMIDE [Concomitant]
  14. FORMOTEROL FUMARATE [Concomitant]
  15. ASPIRIN [Concomitant]
  16. LOPRESSOR [Concomitant]

REACTIONS (4)
  - CYTOMEGALOVIRUS INFECTION [None]
  - ENCEPHALOPATHY [None]
  - INTRACRANIAL PRESSURE INCREASED [None]
  - THROMBOTIC THROMBOCYTOPENIC PURPURA [None]
